FAERS Safety Report 7647870-1 (Version None)
Quarter: 2011Q3

REPORT INFORMATION
  Report Type: 
  Country: None (occurrence: None)
  Receive Date: 20110726
  Receipt Date: 20110715
  Transmission Date: 20111222
  Serious: Yes (Life-Threatening)
  Sender: FDA-Public Use
  Company Number: OSCN-NO-1107L-0164

PATIENT
  Age: 58 Year
  Sex: Male
  Weight: 74.3 kg

DRUGS (1)
  1. OMNISCAN [Suspect]
     Indication: CEREBROVASCULAR ACCIDENT
     Dosage: SINGLE DOSE

REACTIONS (2)
  - NEPHROGENIC SYSTEMIC FIBROSIS [None]
  - NO REACTION ON PREVIOUS EXPOSURE TO DRUG [None]
